FAERS Safety Report 19452421 (Version 1)
Quarter: 2021Q2

REPORT INFORMATION
  Report Type: Spontaneous
  Country: US (occurrence: US)
  Receive Date: 20210623
  Receipt Date: 20210623
  Transmission Date: 20210717
  Serious: Yes (Hospitalization)
  Sender: FDA-Public Use
  Company Number: None

PATIENT
  Sex: Male

DRUGS (5)
  1. FENOFIBRATE TAB 48MG [Concomitant]
     Dates: start: 20210407
  2. REPATHA [Suspect]
     Active Substance: EVOLOCUMAB
     Indication: HYPERTENSION
     Dosage: ?          OTHER FREQUENCY:EVERY 14 DAYS;?
     Route: 058
     Dates: start: 20180119
  3. ALFUZOSIN TAB 10MG ER [Concomitant]
  4. DULOXETINE CAP 30MG [Concomitant]
     Dates: start: 20210318
  5. CARVEDILOL TAB 12.5MG [Concomitant]
     Dates: start: 20210427

REACTIONS (2)
  - Leg amputation [None]
  - Loss of consciousness [None]
